FAERS Safety Report 5500163-0 (Version None)
Quarter: 2007Q4

REPORT INFORMATION
  Report Type: 
  Country: None (occurrence: None)
  Receive Date: 20071025
  Receipt Date: 20071019
  Transmission Date: 20080405
  Serious: Yes (Death)
  Sender: FDA-Public Use
  Company Number: 2007SP021292

PATIENT
  Sex: Male

DRUGS (1)
  1. INTRON A [Suspect]
     Indication: RENAL CELL CARCINOMA STAGE UNSPECIFIED
     Dosage: 6 MIU; IM
     Route: 030
     Dates: end: 20071001

REACTIONS (1)
  - NO ADVERSE REACTION [None]
